FAERS Safety Report 5621683-4 (Version None)
Quarter: 2008Q1

REPORT INFORMATION
  Report Type: 
  Country: None (occurrence: None)
  Receive Date: 20080211
  Receipt Date: 20080128
  Transmission Date: 20080703
  Serious: Yes (Hospitalization, Other)
  Sender: FDA-Public Use
  Company Number: US-AMGEN-KDL261477

PATIENT
  Sex: Female
  Weight: 84.9 kg

DRUGS (16)
  1. ENBREL [Suspect]
     Indication: RHEUMATOID ARTHRITIS
     Route: 058
     Dates: start: 20040328, end: 20070501
  2. DOXYLAMINE SUCCINATE [Concomitant]
  3. SYNTHROID [Concomitant]
  4. CALCIUM GLUCONATE [Concomitant]
  5. VITAMIN B-12 [Concomitant]
  6. IRON [Concomitant]
     Route: 048
  7. ADVAIR DISKUS 100/50 [Concomitant]
     Route: 055
  8. FOSAMAX [Concomitant]
  9. VITAMIN D [Concomitant]
  10. ALTACE [Concomitant]
  11. ZOCOR [Concomitant]
  12. CALTRATE [Concomitant]
  13. FERROUS SULFATE TAB [Concomitant]
  14. POTASSIUM CHLORIDE [Concomitant]
  15. PHENTERMINE [Concomitant]
     Route: 048
  16. INFLUENZA VACCINE [Concomitant]
     Dates: start: 20071107

REACTIONS (14)
  - CONJUNCTIVITIS [None]
  - CUSHING'S SYNDROME [None]
  - DEPRESSION [None]
  - GLOMERULONEPHRITIS MINIMAL LESION [None]
  - HIATUS HERNIA [None]
  - LYMPHADENOPATHY [None]
  - MYALGIA [None]
  - NEPHROTIC SYNDROME [None]
  - OEDEMA PERIPHERAL [None]
  - PAIN IN EXTREMITY [None]
  - RENAL FAILURE CHRONIC [None]
  - RHEUMATOID ARTHRITIS [None]
  - SKIN LESION [None]
  - WRIST FRACTURE [None]
